FAERS Safety Report 5962907-3 (Version None)
Quarter: 2008Q4

REPORT INFORMATION
  Report Type: 
  Country: None (occurrence: None)
  Receive Date: 20081120
  Receipt Date: 20081120
  Transmission Date: 20090506
  Serious: Yes (Other)
  Sender: FDA-Public Use
  Company Number: None

PATIENT
  Sex: Female

DRUGS (1)
  1. LAMOTRIGINE [Suspect]
     Indication: EPILEPSY
     Dosage: 200 MG BID PO
     Route: 048
     Dates: start: 20080825, end: 20080827

REACTIONS (5)
  - EYE SWELLING [None]
  - PRODUCT QUALITY ISSUE [None]
  - PRURITUS [None]
  - SWELLING [None]
  - SWELLING FACE [None]
